FAERS Safety Report 17027161 (Version 1)
Quarter: 2019Q4

REPORT INFORMATION
  Report Type: Spontaneous
  Country: US (occurrence: US)
  Receive Date: 20191010
  Receipt Date: 20191010
  Transmission Date: 20200122
  Serious: No
  Sender: FDA-Public Use
  Company Number: None

PATIENT
  Sex: Female

DRUGS (1)
  1. MYCOPHENOLATE [Suspect]
     Active Substance: MYCOPHENOLIC ACID
     Indication: CREST SYNDROME
     Route: 048
     Dates: start: 20190905

REACTIONS (4)
  - Fatigue [None]
  - Skin abrasion [None]
  - Alopecia [None]
  - Haemorrhage [None]
